FAERS Safety Report 6927978-6 (Version None)
Quarter: 2010Q3

REPORT INFORMATION
  Report Type: 
  Country: None (occurrence: None)
  Receive Date: 20100816
  Receipt Date: 20100816
  Transmission Date: 20110219
  Serious: Yes (Hospitalization)
  Sender: FDA-Public Use
  Company Number: None

PATIENT
  Age: 32 Year
  Sex: Female
  Weight: 54.4316 kg

DRUGS (2)
  1. YASMIN [Suspect]
     Indication: CONTRACEPTION
     Dosage: 1 TABLET EVERY DAY PO
     Route: 048
     Dates: start: 20030901, end: 20060601
  2. YASMIN [Suspect]
     Indication: CONTRACEPTION
     Dosage: 1 TABLET EVERY DAY PO
     Route: 048
     Dates: start: 20070330, end: 20070831

REACTIONS (1)
  - CHOLECYSTECTOMY [None]
